FAERS Safety Report 4780539-X (Version None)
Quarter: 2005Q3

REPORT INFORMATION
  Report Type: 
  Country: None (occurrence: None)
  Receive Date: 20050926
  Receipt Date: 20041117
  Transmission Date: 20060218
  Serious: Yes (Other)
  Sender: FDA-Public Use
  Company Number: 2005015703

PATIENT
  Age: 70 Year
  Sex: Female

DRUGS (6)
  1. DETROL LA [Suspect]
     Indication: HYPERTONIC BLADDER
     Dosage: 4 MG (4 MG, 1 IN 1 D), ORAL
     Route: 048
  2. ALL OTHER THERAPEUTIC PRODUCTS (ALL OTHER THERAPEUTIC PRODUCTS) [Suspect]
     Indication: ILL-DEFINED DISORDER
  3. AMOXICILLIN AND CLAVULANATE POTASSIUM [Suspect]
     Indication: CELLULITIS
     Dosage: 1750 MG (875 MG, 2 IN 1 D), ORAL
     Route: 048
     Dates: start: 20041020
  4. CIPRO [Suspect]
     Indication: CELLULITIS
     Dosage: 1000 MEQ (500 MG, 2 IN 1 D), ORAL
     Route: 048
     Dates: start: 20041020
  5. REMINYL [Concomitant]
  6. MULTIVITAMIN [Concomitant]

REACTIONS (6)
  - ARTHROPOD BITE [None]
  - CELLULITIS [None]
  - IMPAIRED WORK ABILITY [None]
  - POLLAKIURIA [None]
  - VAGINAL DISCHARGE [None]
  - VAGINAL DISORDER [None]
